FAERS Safety Report 4993529-9 (Version None)
Quarter: 2006Q2

REPORT INFORMATION
  Report Type: 
  Country: None (occurrence: None)
  Receive Date: 20060503
  Receipt Date: 20060503
  Transmission Date: 20061013
  Serious: Yes (Hospitalization)
  Sender: FDA-Public Use
  Company Number: None

PATIENT
  Age: 58 Year
  Sex: Male

DRUGS (13)
  1. IMIPENEM [Suspect]
     Indication: CULTURE
     Dosage: 250 MG IV Q 12 H
     Route: 042
     Dates: start: 20060201, end: 20060208
  2. HEPARIN [Suspect]
     Indication: ATRIAL THROMBOSIS
     Dosage: 1200 UNITS/HR IV
     Route: 042
     Dates: start: 20060202, end: 20060208
  3. CILASTATIN/IMIPENEM INJ [Concomitant]
  4. SODIUM CHLORIDE INJ [Concomitant]
  5. DILTIAZEM [Concomitant]
  6. CHLORIDE INJ [Concomitant]
  7. HEPARIN/SODIUM CHLORIDE INJ SOLN [Concomitant]
  8. HUMULIN R [Concomitant]
  9. LABETALOL HCL [Concomitant]
  10. LACTULOSE [Concomitant]
  11. NITROGLYCERIN 2% OINT [Concomitant]
  12. PANTOPRAZOLE INJ, PWDR [Concomitant]
  13. VANCOMYCIN INJ IN 5% DEXTROSE [Concomitant]

REACTIONS (1)
  - THROMBOCYTOPENIA [None]
